FAERS Safety Report 5497782-7 (Version None)
Quarter: 2007Q4

REPORT INFORMATION
  Report Type: 
  Country: None (occurrence: None)
  Receive Date: 20071025
  Receipt Date: 20070227
  Transmission Date: 20080405
  Serious: No
  Sender: FDA-Public Use
  Company Number: A0641148A

PATIENT
  Age: 78 Year
  Sex: Male

DRUGS (5)
  1. ADVAIR DISKUS 100/50 [Suspect]
     Indication: COUGH
     Dosage: 1PUFF TWICE PER DAY
     Route: 055
     Dates: start: 20070216, end: 20070219
  2. UNKNOWN MEDICATION [Concomitant]
  3. PROSCAR [Concomitant]
  4. PRAVACHOL [Concomitant]
  5. INDERAL [Concomitant]

REACTIONS (4)
  - DYSPHONIA [None]
  - DYSPNOEA [None]
  - PHARYNGOLARYNGEAL PAIN [None]
  - THROAT TIGHTNESS [None]
